FAERS Safety Report 7272174-9 (Version None)
Quarter: 2011Q1

REPORT INFORMATION
  Report Type: 
  Country: None (occurrence: None)
  Receive Date: 20110203
  Receipt Date: 20110120
  Transmission Date: 20110831
  Serious: Yes (Hospitalization, Disabling, Other)
  Sender: FDA-Public Use
  Company Number: PHFR2011GB00478

PATIENT
  Sex: Male
  Weight: 92.7 kg

DRUGS (4)
  1. VALPROATE SEMISODIUM [Concomitant]
     Indication: SCHIZOPHRENIA
     Dosage: 1000MG MANE + 1500MG NOCTE
     Route: 048
  2. CITALOPRAM [Concomitant]
     Indication: SCHIZOPHRENIA
     Dosage: 10 MG, QD
     Route: 048
     Dates: end: 20110106
  3. CLOZARIL [Suspect]
     Indication: SCHIZOPHRENIA
     Dosage: 200MG BID
     Route: 048
     Dates: start: 20040520, end: 20101230
  4. LITHIUM [Suspect]
     Indication: SCHIZOPHRENIA
     Dosage: 900 MG, QD
     Route: 048
     Dates: end: 20101230

REACTIONS (8)
  - NEUROTOXICITY [None]
  - PSYCHOMOTOR SKILLS IMPAIRED [None]
  - CONSCIOUSNESS FLUCTUATING [None]
  - HEMIPARESIS [None]
  - COMA [None]
  - FEELING ABNORMAL [None]
  - DYSARTHRIA [None]
  - LOWER RESPIRATORY TRACT INFECTION [None]
